FAERS Safety Report 8315111-8 (Version None)
Quarter: 2012Q2

REPORT INFORMATION
  Report Type: 
  Country: None (occurrence: None)
  Receive Date: 20120426
  Receipt Date: 20120412
  Transmission Date: 20120825
  Serious: Yes (Hospitalization, Other)
  Sender: FDA-Public Use
  Company Number: US-PFIZER INC-2011233845

PATIENT
  Sex: Female
  Weight: 25.1 kg

DRUGS (3)
  1. TYLENOL (CAPLET) [Suspect]
     Indication: PYREXIA
     Dosage: UNK
     Route: 065
     Dates: start: 20100205
  2. CHILDREN'S MOTRIN [Suspect]
     Indication: PYREXIA
     Dosage: UNK
     Dates: start: 20100204
  3. NYQUIL [Suspect]
     Indication: PYREXIA
     Dosage: UNK
     Dates: start: 20100204

REACTIONS (12)
  - GENITAL LABIAL ADHESIONS [None]
  - ASTEATOSIS [None]
  - SKIN DISCOLOURATION [None]
  - TOXIC EPIDERMAL NECROLYSIS [None]
  - LEUKODERMA [None]
  - DACRYOSTENOSIS ACQUIRED [None]
  - EXCORIATION [None]
  - HYPOTRICHOSIS [None]
  - LACRIMATION INCREASED [None]
  - STEVENS-JOHNSON SYNDROME [None]
  - SEBORRHOEIC DERMATITIS [None]
  - STREPTOCOCCUS TEST POSITIVE [None]
